FAERS Safety Report 13015148 (Version 1)
Quarter: 2016Q4

REPORT INFORMATION
  Report Type: Spontaneous
  Country: US (occurrence: US)
  Receive Date: 20161211
  Receipt Date: 20161211
  Transmission Date: 20170207
  Serious: Yes (Other)
  Sender: FDA-Public Use
  Company Number: US-ELI_LILLY_AND_COMPANY-US201611010644

PATIENT
  Weight: 2.7 kg

DRUGS (4)
  1. SERTRALINE [Concomitant]
     Active Substance: SERTRALINE HYDROCHLORIDE
     Dosage: 75 MG, UNKNOWN
     Route: 065
  2. FOLIC ACID. [Concomitant]
     Active Substance: FOLIC ACID
     Dosage: 100 MG, UNKNOWN
     Route: 065
  3. HUMALOG [Suspect]
     Active Substance: INSULIN LISPRO
     Indication: TYPE 1 DIABETES MELLITUS
     Dosage: 25 U, QD
     Route: 058
     Dates: start: 200107
  4. ACIDOPHILUS [Concomitant]
     Active Substance: LACTOBACILLUS ACIDOPHILUS

REACTIONS (6)
  - Foetal exposure during pregnancy [Recovered/Resolved]
  - Selective eating disorder [Recovered/Resolved]
  - Exposure during breast feeding [Not Recovered/Not Resolved]
  - Anaemia [Recovered/Resolved]
  - Respiratory distress [Recovered/Resolved]
  - Sepsis neonatal [Recovered/Resolved]
